FAERS Safety Report 8616388-1 (Version None)
Quarter: 2012Q3

REPORT INFORMATION
  Report Type: 
  Country: None (occurrence: None)
  Receive Date: 20120823
  Receipt Date: 20120814
  Transmission Date: 20120928
  Serious: Yes (Hospitalization)
  Sender: FDA-Public Use
  Company Number: SG-ASTRAZENECA-2012SE57798

PATIENT
  Age: 12 Year
  Sex: Male

DRUGS (3)
  1. AMOXICILLIN [Concomitant]
     Indication: HELICOBACTER INFECTION
  2. CLARITHROMYCIN [Concomitant]
     Indication: HELICOBACTER INFECTION
  3. OMEPRAZOLE [Suspect]
     Indication: HELICOBACTER INFECTION
     Route: 048

REACTIONS (1)
  - MYOSITIS [None]
